FAERS Safety Report 9996243 (Version 1)
Quarter: 2014Q1

REPORT INFORMATION
  Report Type: Spontaneous
  Country: DK (occurrence: IT)
  Receive Date: 20140311
  Receipt Date: 20140311
  Transmission Date: 20141002
  Serious: Yes (Hospitalization)
  Sender: FDA-Public Use
  Company Number: IT-FRI-1000060438

PATIENT
  Age: 61 Year
  Sex: Female

DRUGS (5)
  1. ESCITALOPRAM [Suspect]
     Indication: DEPRESSION
     Route: 048
     Dates: end: 20131223
  2. ESCITALOPRAM [Suspect]
     Indication: INTENTIONAL SELF-INJURY
     Dosage: OVERDOSE: 80 MG IN ONE DOSE
     Route: 048
     Dates: start: 20131224, end: 20131224
  3. ESCITALOPRAM [Suspect]
     Route: 048
     Dates: start: 2013
  4. ALPRAZOLAM [Suspect]
     Indication: INTENTIONAL SELF-INJURY
     Route: 048
     Dates: end: 20131223
  5. ALPRAZOLAM [Suspect]
     Dosage: OVERDOSE: ONE BOTTLE AT ONCE
     Route: 048
     Dates: start: 20131224, end: 20131224

REACTIONS (5)
  - Drug abuse [Recovered/Resolved]
  - Mydriasis [Recovered/Resolved]
  - Unresponsive to stimuli [Recovered/Resolved]
  - Sopor [Recovered/Resolved]
  - Intentional overdose [Recovered/Resolved]
